FAERS Safety Report 5492031-8 (Version None)
Quarter: 2007Q4

REPORT INFORMATION
  Report Type: 
  Country: None (occurrence: None)
  Receive Date: 20071018
  Receipt Date: 20071018
  Transmission Date: 20080405
  Serious: Yes (Other)
  Sender: FDA-Public Use
  Company Number: None

PATIENT
  Sex: Female
  Weight: 81.6475 kg

DRUGS (1)
  1. ZINCAM [Suspect]
     Indication: NASOPHARYNGITIS
     Dosage: ONE SQUIRT ONCE PER DAY NASAL
     Route: 045
     Dates: start: 20030201, end: 20030204

REACTIONS (2)
  - AGEUSIA [None]
  - ANOSMIA [None]
